FAERS Safety Report 18439723 (Version 1)
Quarter: 2020Q4

REPORT INFORMATION
  Report Type: Spontaneous
  Country: GB (occurrence: GB)
  Receive Date: 20201029
  Receipt Date: 20201029
  Transmission Date: 20210114
  Serious: Yes (Hospitalization)
  Sender: FDA-Public Use
  Company Number: GB-ACCORD-206537

PATIENT
  Age: 58 Year
  Sex: Male
  Weight: 127 kg

DRUGS (17)
  1. DIGOXIN. [Concomitant]
     Active Substance: DIGOXIN
  2. PREGABALIN. [Concomitant]
     Active Substance: PREGABALIN
  3. ALLOPURINOL. [Concomitant]
     Active Substance: ALLOPURINOL
  4. GLICLAZIDE [Concomitant]
     Active Substance: GLICLAZIDE
  5. METFORMIN [Suspect]
     Active Substance: METFORMIN HYDROCHLORIDE
     Indication: PRODUCT USED FOR UNKNOWN INDICATION
     Route: 048
     Dates: start: 20101008, end: 20201014
  6. CODEINE PHOSPHATE/PARACETAMOL [Concomitant]
     Active Substance: ACETAMINOPHEN\CODEINE PHOSPHATE
  7. DABIGATRAN/DABIGATRAN ETEXILATE [Concomitant]
     Active Substance: DABIGATRAN ETEXILATE
  8. OMEPRAZOLE. [Concomitant]
     Active Substance: OMEPRAZOLE
  9. FUROSEMIDE. [Suspect]
     Active Substance: FUROSEMIDE
     Indication: PRODUCT USED FOR UNKNOWN INDICATION
     Route: 048
     Dates: start: 20160517, end: 20201014
  10. LISINOPRIL. [Suspect]
     Active Substance: LISINOPRIL
     Indication: PRODUCT USED FOR UNKNOWN INDICATION
     Route: 048
     Dates: start: 20170628, end: 20201014
  11. SPIRONOLACTONE. [Concomitant]
     Active Substance: SPIRONOLACTONE
  12. SIMVASTATIN. [Concomitant]
     Active Substance: SIMVASTATIN
  13. QUININE [Concomitant]
     Active Substance: QUININE
  14. FEXOFENADINE [Concomitant]
     Active Substance: FEXOFENADINE HYDROCHLORIDE
  15. TENSIPINE MR [Concomitant]
     Active Substance: NIFEDIPINE
  16. BISOPROLOL [Concomitant]
     Active Substance: BISOPROLOL
  17. ALLOPURINOL. [Concomitant]
     Active Substance: ALLOPURINOL

REACTIONS (2)
  - Acute kidney injury [Recovering/Resolving]
  - Dehydration [Recovering/Resolving]

NARRATIVE: CASE EVENT DATE: 20201013
